FAERS Safety Report 4829243-X (Version None)
Quarter: 2005Q4

REPORT INFORMATION
  Report Type: 
  Country: None (occurrence: None)
  Receive Date: 20051028
  Receipt Date: 20040921
  Transmission Date: 20060501
  Serious: No
  Sender: FDA-Public Use
  Company Number: TPA2004A01016

PATIENT
  Age: 59 Year
  Sex: Female
  Weight: 127.9144 kg

DRUGS (12)
  1. ACTOS [Suspect]
     Indication: DIABETES MELLITUS NON-INSULIN-DEPENDENT
     Dosage: 45 MG, 1 IN 1 D, PER ORAL; 30 MG, 1 IN 1 D, PER ORAL
     Route: 048
     Dates: start: 20040329, end: 20040525
  2. ACTOS [Suspect]
     Indication: DIABETES MELLITUS NON-INSULIN-DEPENDENT
     Dosage: 45 MG, 1 IN 1 D, PER ORAL; 30 MG, 1 IN 1 D, PER ORAL
     Route: 048
     Dates: start: 20040525, end: 20040818
  3. NOVOPEN INSULIN (INSULIN/N/A/)(INJECTION) [Concomitant]
  4. ATENOLOL [Concomitant]
  5. LANTUS [Concomitant]
  6. ALTACE [Concomitant]
  7. BUSPAR [Concomitant]
  8. LEXAPRO [Concomitant]
  9. NEXIUM [Concomitant]
  10. XANAX [Concomitant]
  11. SEROQUEL [Concomitant]
  12. ALPRAZOLAM [Concomitant]

REACTIONS (7)
  - CARDIAC DISORDER [None]
  - DYSPNOEA [None]
  - FATIGUE [None]
  - MALAISE [None]
  - OEDEMA PERIPHERAL [None]
  - PARAESTHESIA [None]
  - WEIGHT INCREASED [None]
